FAERS Safety Report 8614511-6 (Version None)
Quarter: 2012Q3

REPORT INFORMATION
  Report Type: 
  Country: None (occurrence: None)
  Receive Date: 20120823
  Receipt Date: 20120820
  Transmission Date: 20120928
  Serious: Yes (Hospitalization, Other)
  Sender: FDA-Public Use
  Company Number: PHFR2012GB003209

PATIENT
  Sex: Male

DRUGS (1)
  1. CLOZARIL [Suspect]
     Indication: SCHIZOPHRENIA
     Dosage: 350 MG
     Route: 048
     Dates: start: 20070925

REACTIONS (6)
  - BRAIN NEOPLASM [None]
  - SEDATION [None]
  - LOSS OF CONSCIOUSNESS [None]
  - ASTHENIA [None]
  - NEOPLASM [None]
  - WHITE BLOOD CELL COUNT INCREASED [None]
